FAERS Safety Report 5743306-6 (Version None)
Quarter: 2008Q2

REPORT INFORMATION
  Report Type: 
  Country: None (occurrence: None)
  Receive Date: 20080519
  Receipt Date: 20080509
  Transmission Date: 20081010
  Serious: Yes (Life-Threatening)
  Sender: FDA-Public Use
  Company Number: US-PFIZER INC-2008035687

PATIENT
  Sex: Female
  Weight: 67 kg

DRUGS (5)
  1. EXEMESTANE [Suspect]
     Indication: BREAST CANCER
     Route: 048
  2. ACETYLSALICYLIC ACID SRT [Concomitant]
  3. VITAMIN CAP [Concomitant]
     Dates: start: 19870101
  4. CALCIUM [Concomitant]
     Dates: start: 19870101
  5. ASCORBIC ACID [Concomitant]
     Dates: start: 19870101

REACTIONS (2)
  - HYPERTENSION [None]
  - TRANSIENT ISCHAEMIC ATTACK [None]
